FAERS Safety Report 17498434 (Version 2)
Quarter: 2020Q2

REPORT INFORMATION
  Report Type: Spontaneous
  Country: GR (occurrence: GR)
  Receive Date: 20200304
  Receipt Date: 20200408
  Transmission Date: 20200713
  Serious: Yes (Other)
  Sender: FDA-Public Use
  Company Number: GR-BEH-2020113914

PATIENT
  Age: 75 Year
  Sex: Female

DRUGS (3)
  1. HUMAN IMMUNOGLOBULIN (NC) [Suspect]
     Active Substance: HUMAN IMMUNOGLOBULIN G
     Dosage: 0.4 GRAM PER KILOGRAM (2ND COURSE)
     Route: 042
  2. HUMAN IMMUNOGLOBULIN (NC) [Suspect]
     Active Substance: HUMAN IMMUNOGLOBULIN G
     Indication: ENCEPHALITIS AUTOIMMUNE
     Dosage: 0.4 GRAM PER KILOGRAM (1ST COURSE)
     Route: 042
  3. HUMAN IMMUNOGLOBULIN (NC) [Suspect]
     Active Substance: HUMAN IMMUNOGLOBULIN G
     Dosage: 0.4 GRAM PER KILOGRAM (3RD COURSE)
     Route: 042

REACTIONS (10)
  - Haemolytic anaemia [Recovered/Resolved]
  - Coombs direct test positive [Recovered/Resolved]
  - Haemoglobin decreased [Recovered/Resolved]
  - No adverse event [Unknown]
  - Bilirubin conjugated increased [Recovered/Resolved]
  - Product use in unapproved indication [Unknown]
  - Haematocrit decreased [Recovered/Resolved]
  - Blood bilirubin unconjugated increased [Recovered/Resolved]
  - Blood bilirubin increased [Recovered/Resolved]
  - Reticulocyte count increased [Recovered/Resolved]
